FAERS Safety Report 7156762-6 (Version None)
Quarter: 2010Q4

REPORT INFORMATION
  Report Type: 
  Country: None (occurrence: None)
  Receive Date: 20101214
  Receipt Date: 20101209
  Transmission Date: 20110411
  Serious: Yes (Death, Other)
  Sender: FDA-Public Use
  Company Number: FR-MPIJNJ-2010-06171

PATIENT

DRUGS (9)
  1. VELCADE [Suspect]
     Indication: PRODUCT USED FOR UNKNOWN INDICATION
     Dosage: UNK
     Route: 042
     Dates: start: 20101011, end: 20101011
  2. DEXAMETHASONE [Suspect]
     Indication: PRODUCT USED FOR UNKNOWN INDICATION
     Dosage: UNK
     Route: 065
     Dates: start: 20101011, end: 20101011
  3. THALIDOMIDE [Concomitant]
     Indication: MULTIPLE MYELOMA
     Dosage: 200 MG, UNK
     Route: 048
     Dates: start: 20091029
  4. THALIDOMIDE [Concomitant]
     Dosage: 50 UNK, UNK
     Route: 048
     Dates: start: 20100819, end: 20100929
  5. MELPHALAN HYDROCHLORIDE [Concomitant]
     Indication: MULTIPLE MYELOMA
     Dosage: 18 UNK, UNK
     Dates: start: 20091029
  6. MELPHALAN HYDROCHLORIDE [Concomitant]
     Dosage: 16 MG, UNK
     Dates: start: 20100819, end: 20100822
  7. PREDNISONE [Concomitant]
     Indication: MULTIPLE MYELOMA
     Dosage: 150 MG, UNK
     Route: 065
     Dates: start: 20091029
  8. PREDNISONE [Concomitant]
     Dosage: 120 MG, UNK
     Dates: start: 20100819, end: 20100822
  9. ANTITHROMBOTIC AGENTS [Concomitant]
     Indication: THROMBOSIS PROPHYLAXIS

REACTIONS (3)
  - LUNG INFECTION [None]
  - PULMONARY HAEMORRHAGE [None]
  - THROMBOCYTOPENIA [None]
